FAERS Safety Report 17611036 (Version 1)
Quarter: 2020Q1

REPORT INFORMATION
  Report Type: Spontaneous
  Country: US (occurrence: US)
  Receive Date: 20200330
  Receipt Date: 20200330
  Transmission Date: 20200409
  Serious: No
  Sender: FDA-Public Use
  Company Number: None

PATIENT
  Age: 38 Year
  Sex: Male
  Weight: 90.26 kg

DRUGS (1)
  1. PRAZOSIN (PRAZOSIN HCL 2MG CAP) [Suspect]
     Active Substance: PRAZOSIN
     Indication: POST-TRAUMATIC STRESS DISORDER
     Dates: start: 20190808, end: 20191101

REACTIONS (1)
  - Priapism [None]

NARRATIVE: CASE EVENT DATE: 20191101
